FAERS Safety Report 8371522-6 (Version None)
Quarter: 2012Q2

REPORT INFORMATION
  Report Type: 
  Country: None (occurrence: None)
  Receive Date: 20120518
  Receipt Date: 20120510
  Transmission Date: 20120825
  Serious: Yes (Hospitalization)
  Sender: FDA-Public Use
  Company Number: CH-ASTRAZENECA-2012SE30668

PATIENT
  Age: 84 Year
  Sex: Male

DRUGS (12)
  1. SEROQUEL [Suspect]
     Route: 048
     Dates: start: 20120207, end: 20120227
  2. PANTOPRAZOLE [Suspect]
     Route: 048
  3. SEROQUEL [Suspect]
     Route: 048
     Dates: start: 20120228, end: 20120312
  4. ATORVASTATIN CALCIUM [Suspect]
     Route: 048
     Dates: start: 20090101
  5. SEROQUEL [Suspect]
     Route: 048
     Dates: start: 20120201, end: 20120206
  6. LORAZEPAM [Suspect]
     Route: 048
     Dates: start: 20120104, end: 20120201
  7. LORAZEPAM [Suspect]
     Route: 048
     Dates: start: 20120202, end: 20120219
  8. PLAVIX [Suspect]
     Route: 048
     Dates: start: 20120412
  9. LORAZEPAM [Suspect]
     Route: 048
     Dates: start: 20120306
  10. PLAVIX [Suspect]
     Route: 048
     Dates: start: 20090101, end: 20120315
  11. LORAZEPAM [Suspect]
     Route: 048
     Dates: start: 20120220, end: 20120305
  12. ESCITALOPRAM [Concomitant]
     Route: 048
     Dates: start: 20120104, end: 20120227

REACTIONS (1)
  - PANCYTOPENIA [None]
